FAERS Safety Report 16960881 (Version 2)
Quarter: 2019Q4

REPORT INFORMATION
  Report Type: Spontaneous
  Country: US (occurrence: US)
  Receive Date: 20191025
  Receipt Date: 20191025
  Transmission Date: 20200122
  Serious: Yes (Life-Threatening)
  Sender: FDA-Public Use
  Company Number: US-SHIRE-US201936215

PATIENT
  Sex: Female

DRUGS (3)
  1. ROCALTROL [Concomitant]
     Active Substance: CALCITRIOL
     Indication: HYPOCALCAEMIA
  2. CITRACAL [Concomitant]
     Active Substance: CALCIUM CITRATE
     Indication: HYPOCALCAEMIA
  3. NATPARA (PARATHYROID HORMONE) [Suspect]
     Active Substance: PARATHYROID HORMONE
     Indication: HYPOPARATHYROIDISM
     Dosage: 25 MICROGRAM, 1X/DAY:QD
     Route: 058

REACTIONS (3)
  - Feeling abnormal [Unknown]
  - Recalled product [Unknown]
  - Blood calcium decreased [Unknown]
